FAERS Safety Report 5002883-3 (Version None)
Quarter: 2006Q2

REPORT INFORMATION
  Report Type: 
  Country: None (occurrence: None)
  Receive Date: 20060516
  Receipt Date: 20060426
  Transmission Date: 20061013
  Serious: Yes (Death, Other)
  Sender: FDA-Public Use
  Company Number: PHBS2006JP06241

PATIENT
  Age: 90 Year
  Sex: Male

DRUGS (1)
  1. GLEEVEC [Suspect]
     Indication: GASTROINTESTINAL STROMAL TUMOUR
     Route: 048

REACTIONS (3)
  - EXTRASKELETAL OSSIFICATION [None]
  - MALIGNANT NEOPLASM PROGRESSION [None]
  - RESPIRATORY FAILURE [None]
